FAERS Safety Report 24554139 (Version 2)
Quarter: 2025Q1

REPORT INFORMATION
  Report Type: Spontaneous
  Country: JP (occurrence: JP)
  Receive Date: 20241028
  Receipt Date: 20250311
  Transmission Date: 20250408
  Serious: Yes (Life-Threatening, Hospitalization, Other)
  Sender: TAKEDA
  Company Number: JP-TAKEDA-2024TJP015278

PATIENT
  Age: 30 Year
  Sex: Male
  Weight: 50 kg

DRUGS (4)
  1. ENTYVIO [Suspect]
     Active Substance: VEDOLIZUMAB
     Indication: Colitis ulcerative
     Dosage: 300 MILLIGRAM, Q8WEEKS
     Dates: start: 20190302, end: 20240706
  2. MESALAMINE [Concomitant]
     Active Substance: MESALAMINE
     Indication: Colitis ulcerative
     Dosage: 3 DOSAGE FORM, TID
     Dates: start: 20180106
  3. GASTER [Concomitant]
     Active Substance: FAMOTIDINE
     Indication: Gastritis
     Dosage: 1 DOSAGE FORM, BID
     Dates: start: 20181124
  4. Bio three od [Concomitant]
     Indication: Colitis ulcerative
     Dosage: 1 DOSAGE FORM, TID
     Dates: start: 20190302

REACTIONS (2)
  - Rectal cancer [Not Recovered/Not Resolved]
  - Condition aggravated [Unknown]
